FAERS Safety Report 4767020-9 (Version None)
Quarter: 2005Q3

REPORT INFORMATION
  Report Type: 
  Country: None (occurrence: None)
  Receive Date: 20050908
  Receipt Date: 20050812
  Transmission Date: 20060218
  Serious: Yes (Hospitalization)
  Sender: FDA-Public Use
  Company Number: 6016658

PATIENT
  Age: 72 Year
  Sex: Female

DRUGS (8)
  1. DAPA-TABS (2 MG, TABLET) (INDAPAMIDE) [Suspect]
     Indication: ESSENTIAL HYPERTENSION
     Dosage: 2 MG (2 MG, 1 D), ORAL
     Route: 048
  2. TRANDOLAPRIL (2 MG, CAPSULES) (TRANDOLAPRIL) [Concomitant]
  3. PREDNISOLONE (5 MG, TABLET) (PREDNISOLONE) [Concomitant]
  4. ROFECOXIB (12 MG, TABLET) (ROFECOXIB) [Concomitant]
  5. ALLOPURINOL (150 MG, TABLET) (ALLOPURINOL) [Concomitant]
  6. SERTRALINE (50 MG, TABLET) (SERTRALINE) [Concomitant]
  7. CHLORAMBUCIL (6 MG, TABLET) (CHLORAMBUCIL) [Concomitant]
  8. ASPIRIN (100 MG, TABLET) (ACETYLSALICYLIC ACID) [Concomitant]

REACTIONS (3)
  - HYPONATRAEMIA [None]
  - INAPPROPRIATE ANTIDIURETIC HORMONE SECRETION [None]
  - PSYCHOTIC DISORDER [None]
